FAERS Safety Report 8541703-7 (Version None)
Quarter: 2012Q3

REPORT INFORMATION
  Report Type: 
  Country: None (occurrence: None)
  Receive Date: 20120726
  Receipt Date: 20120720
  Transmission Date: 20120928
  Serious: Yes (Death, Hospitalization)
  Sender: FDA-Public Use
  Company Number: PHHY2012FR047009

PATIENT
  Sex: Male

DRUGS (9)
  1. CISPLATIN [Suspect]
     Indication: LARYNGEAL CANCER
     Route: 042
     Dates: start: 20120109, end: 20120205
  2. SOTALOL HCL [Concomitant]
     Dates: start: 20110505
  3. ONDANSETRON [Concomitant]
     Dates: start: 20120109, end: 20120201
  4. DOCETAXEL [Suspect]
     Indication: LARYNGEAL CANCER
     Route: 042
     Dates: start: 20120109, end: 20120205
  5. FLUOROURACIL [Suspect]
     Route: 042
     Dates: start: 20120109, end: 20120201
  6. CORDARONE [Suspect]
     Route: 048
     Dates: end: 20120117
  7. INNOHEP [Concomitant]
  8. GRANOCYTE [Suspect]
     Route: 042
     Dates: end: 20120205
  9. DEXAMETHASONE [Concomitant]
     Dates: start: 20120109, end: 20120201

REACTIONS (2)
  - RESPIRATORY DISTRESS [None]
  - INTERSTITIAL LUNG DISEASE [None]
